FAERS Safety Report 12299560 (Version 2)
Quarter: 2016Q2

REPORT INFORMATION
  Report Type: Spontaneous
  Country: US (occurrence: US)
  Receive Date: 20160425
  Receipt Date: 20160517
  Transmission Date: 20160815
  Serious: Yes (Hospitalization, Other)
  Sender: FDA-Public Use
  Company Number: US-JNJFOC-20160419961

PATIENT
  Age: 34 Year
  Sex: Female
  Weight: 65 kg

DRUGS (11)
  1. ZOFRAN [Concomitant]
     Active Substance: ONDANSETRON HYDROCHLORIDE
     Route: 065
  2. XARELTO [Suspect]
     Active Substance: RIVAROXABAN
     Indication: DEEP VEIN THROMBOSIS
     Route: 048
     Dates: start: 20160115, end: 201602
  3. XARELTO [Suspect]
     Active Substance: RIVAROXABAN
     Indication: DEEP VEIN THROMBOSIS
     Route: 048
     Dates: start: 201602, end: 20160312
  4. DIPHENHYDRAMINE. [Concomitant]
     Active Substance: DIPHENHYDRAMINE
     Indication: PRURITUS
     Route: 048
  5. XANAX [Concomitant]
     Active Substance: ALPRAZOLAM
     Route: 065
  6. PLAVIX [Suspect]
     Active Substance: CLOPIDOGREL BISULFATE
     Indication: DEEP VEIN THROMBOSIS
     Route: 065
     Dates: start: 20160313
  7. XARELTO [Suspect]
     Active Substance: RIVAROXABAN
     Indication: ARTERIAL OCCLUSIVE DISEASE
     Route: 048
     Dates: start: 20160115, end: 201602
  8. DILANTIN [Concomitant]
     Active Substance: PHENYTOIN
     Route: 065
  9. XARELTO [Suspect]
     Active Substance: RIVAROXABAN
     Indication: ARTERIAL OCCLUSIVE DISEASE
     Route: 048
     Dates: start: 201602, end: 20160312
  10. PLAVIX [Suspect]
     Active Substance: CLOPIDOGREL BISULFATE
     Indication: DEEP VEIN THROMBOSIS
     Route: 065
     Dates: start: 20160115, end: 20160312
  11. KEPPRA [Concomitant]
     Active Substance: LEVETIRACETAM
     Route: 065

REACTIONS (6)
  - Metrorrhagia [Unknown]
  - Coagulopathy [Recovered/Resolved]
  - Vaginal haemorrhage [Recovered/Resolved]
  - Anxiety [Unknown]
  - Anaemia [Recovering/Resolving]
  - Blood pressure fluctuation [Recovering/Resolving]

NARRATIVE: CASE EVENT DATE: 2016
